FAERS Safety Report 13990541 (Version 2)
Quarter: 2017Q3

REPORT INFORMATION
  Report Type: Report from Study
  Country: RU (occurrence: RU)
  Receive Date: 20170920
  Receipt Date: 20170920
  Transmission Date: 20171128
  Serious: Yes (Hospitalization)
  Sender: FDA-Public Use
  Company Number: PHHO2005RU02031

PATIENT
  Age: 65 Year
  Sex: Female
  Weight: 67 kg

DRUGS (4)
  1. CALCIUM [Concomitant]
     Active Substance: CALCIUM
     Indication: OSTEOPOROSIS POSTMENOPAUSAL
     Dosage: 500 MG, BID
     Route: 048
  2. VITAMIN D [Concomitant]
     Active Substance: CHOLECALCIFEROL
     Indication: OSTEOPOROSIS POSTMENOPAUSAL
     Dosage: 400-800 IU, QD
     Route: 048
  3. DICLOFENAC [Suspect]
     Active Substance: DICLOFENAC
     Indication: PRODUCT USED FOR UNKNOWN INDICATION
     Route: 065
  4. AAE 581 [Suspect]
     Active Substance: BALICATIB
     Indication: OSTEOPOROSIS POSTMENOPAUSAL
     Dosage: 25 MG, QD
     Route: 048
     Dates: start: 20040803

REACTIONS (1)
  - Traumatic fracture [Recovered/Resolved]

NARRATIVE: CASE EVENT DATE: 20041209
